FAERS Safety Report 16718135 (Version 1)
Quarter: 2019Q3

REPORT INFORMATION
  Report Type: Spontaneous
  Country: DK (occurrence: DK)
  Receive Date: 20190819
  Receipt Date: 20190819
  Transmission Date: 20191005
  Serious: Yes (Hospitalization)
  Sender: FDA-Public Use
  Company Number: DK-B.I. PHARMACEUTICALS,INC./RIDGEFIELD-2019-12-002634

PATIENT
  Age: 75 Year
  Sex: Male

DRUGS (18)
  1. JARDIANCE [Suspect]
     Active Substance: EMPAGLIFLOZIN
     Indication: TYPE 2 DIABETES MELLITUS
     Dosage: STRENGTH: 25 MG. DOSE: UNSURE
     Route: 048
     Dates: start: 20180619, end: 20190601
  2. CYANOCOBALAMIN. [Concomitant]
     Active Substance: CYANOCOBALAMIN
     Indication: VITAMIN B12 DEFICIENCY
     Dosage: STYRKE: 1 MG.
     Route: 048
     Dates: start: 20130611
  3. CHLORZOXAZONE. [Concomitant]
     Active Substance: CHLORZOXAZONE
     Indication: MUSCLE RELAXANT THERAPY
     Dosage: STYRKE: 250 MG.
     Route: 048
     Dates: start: 20181214
  4. SALBUTAMOL [Concomitant]
     Active Substance: ALBUTEROL
     Indication: BRONCHOSPASM
     Dosage: STRENGTH: 0.2 MG. DOSE: 1 PUFF WHEN NEEDED, MAXIMUM 24 TIMES DAILY; FORM OF ADMIN: INHALATION POWDER
     Route: 055
     Dates: start: 20110318
  5. IBUPROFEN. [Concomitant]
     Active Substance: IBUPROFEN
     Indication: PAIN
     Dosage: STYRKE: 600 MG.
     Route: 048
     Dates: start: 20181115, end: 20190528
  6. METFORMIN [Concomitant]
     Active Substance: METFORMIN HYDROCHLORIDE
     Indication: DIABETES MELLITUS
     Dosage: STYRKE: 500 MG.
     Route: 048
     Dates: start: 20190521
  7. LOSARTAN. [Concomitant]
     Active Substance: LOSARTAN
     Indication: HYPERTENSION
     Dosage: STYRKE: 50 MG.
     Route: 048
     Dates: start: 20171219
  8. INSULIN GLARGINE [Concomitant]
     Active Substance: INSULIN GLARGINE
     Indication: DIABETES MELLITUS
     Dosage: STYRKE: 300 ENHEDER/ML. FORM OF ADMIN.: SOLUTION FOR INJECTION IN PRE-FILLED PEN
     Route: 058
     Dates: start: 20120224
  9. GABAPENTIN. [Concomitant]
     Active Substance: GABAPENTIN
     Indication: PAIN
     Dosage: STYRKE: 300 MG.
     Route: 048
     Dates: start: 20190124
  10. NAPROXEN. [Concomitant]
     Active Substance: NAPROXEN
     Indication: PAIN
     Dosage: STYRKE: 500 MG.
     Route: 054
     Dates: start: 20190508, end: 20190528
  11. AMLODIPINE [Concomitant]
     Active Substance: AMLODIPINE BESYLATE
     Indication: CARDIOVASCULAR EVENT PROPHYLAXIS
     Dosage: STYRKE: 10 MG.
     Route: 048
     Dates: start: 201709
  12. POTASSIUM CHLORIDE. [Concomitant]
     Active Substance: POTASSIUM CHLORIDE
     Indication: MINERAL SUPPLEMENTATION
     Dosage: STYRKE: 750 MG.
     Route: 048
     Dates: start: 20171219
  13. SIMVASTATIN. [Concomitant]
     Active Substance: SIMVASTATIN
     Indication: HYPERCHOLESTEROLAEMIA
     Dosage: STYRKE: 40 MG.
     Route: 048
     Dates: start: 20170712
  14. PARACETAMOL [Concomitant]
     Active Substance: ACETAMINOPHEN
     Indication: PAIN
     Dosage: STRENGTH: 500 MG. DOSE: 2 TABLETS WHEN NEEDED, MAXIMUM 4 TIMES DAILY; AS REQUIRED
     Route: 048
     Dates: start: 20180619
  15. FUROSEMIDE. [Concomitant]
     Active Substance: FUROSEMIDE
     Indication: DIURETIC THERAPY
     Dosage: STYRKE: 40 MG.
     Route: 048
     Dates: start: 20180817
  16. METOPROLOL. [Concomitant]
     Active Substance: METOPROLOL
     Indication: THROMBOSIS PROPHYLAXIS
     Dosage: STYRKE: 50 MG.
     Route: 048
     Dates: start: 20170712
  17. ACETYLSALICYLIC ACID [Concomitant]
     Active Substance: ASPIRIN
     Indication: THROMBOSIS PROPHYLAXIS
     Dosage: STYRKE: 75 MG.
     Route: 048
     Dates: start: 20170705
  18. PANTOPRAZOLE [Concomitant]
     Active Substance: PANTOPRAZOLE
     Indication: GASTROOESOPHAGEAL REFLUX DISEASE
     Dosage: STRENGTH: 40 MG. DOSE: 1 TABLET WHEN NEEDED, MAXIMUM 1 TIME DAILY; AS REQUIRED
     Route: 048
     Dates: start: 20180319

REACTIONS (1)
  - Diabetic ketoacidosis [Recovered/Resolved]

NARRATIVE: CASE EVENT DATE: 201905
